FAERS Safety Report 4732770-7 (Version None)
Quarter: 2005Q3

REPORT INFORMATION
  Report Type: 
  Country: None (occurrence: None)
  Receive Date: 20050803
  Receipt Date: 20050726
  Transmission Date: 20060218
  Serious: Yes (Hospitalization)
  Sender: FDA-Public Use
  Company Number: FR-GLAXOSMITHKLINE-B0388913A

PATIENT
  Age: 71 Year
  Sex: Male

DRUGS (6)
  1. AUGMENTIN '125' [Suspect]
     Indication: DRUG USE FOR UNKNOWN INDICATION
     Dosage: 2G THREE TIMES PER DAY
     Route: 042
     Dates: start: 20050614, end: 20050617
  2. VANCOMYCIN [Suspect]
     Indication: DRUG USE FOR UNKNOWN INDICATION
     Dosage: 1750MG PER DAY
     Route: 042
     Dates: start: 20050617, end: 20050630
  3. TIENAM [Suspect]
     Indication: DRUG USE FOR UNKNOWN INDICATION
     Dosage: 750MG THREE TIMES PER DAY
     Route: 042
     Dates: start: 20050617, end: 20050630
  4. TRIFLUCAN IV [Suspect]
     Indication: DRUG USE FOR UNKNOWN INDICATION
     Dosage: 100MG THREE TIMES PER DAY
     Route: 042
     Dates: start: 20050620, end: 20050630
  5. MONOTILDIEM [Concomitant]
  6. RAMIPRIL [Concomitant]

REACTIONS (2)
  - HEPATIC ENZYME INCREASED [None]
  - JUVENILE ARTHRITIS [None]
